FAERS Safety Report 8850285 (Version 2)
Quarter: 2013Q3

REPORT INFORMATION
  Report Type: Spontaneous
  Country: US (occurrence: US)
  Receive Date: 20121019
  Receipt Date: 20130807
  Transmission Date: 20140515
  Serious: No
  Sender: FDA-Public Use
  Company Number: US-PFIZER INC-2012257726

PATIENT
  Age: 57 Year
  Sex: Male
  Weight: 111 kg

DRUGS (3)
  1. VIAGRA [Suspect]
     Indication: ERECTILE DYSFUNCTION
     Dosage: UNK, AS NEEDED
     Route: 048
     Dates: start: 20121012
  2. VIAGRA [Suspect]
     Dosage: UNK
  3. PLAVIX [Concomitant]
     Indication: STENT PLACEMENT
     Dosage: 75 MG, DAILY

REACTIONS (2)
  - Product counterfeit [Unknown]
  - Nasal congestion [Unknown]
